FAERS Safety Report 7389261-7 (Version None)
Quarter: 2011Q2

REPORT INFORMATION
  Report Type: 
  Country: None (occurrence: None)
  Receive Date: 20110401
  Receipt Date: 20110328
  Transmission Date: 20111010
  Serious: Yes (Hospitalization)
  Sender: FDA-Public Use
  Company Number: IT-BAYER-2011-027161

PATIENT
  Sex: Male

DRUGS (3)
  1. TELMISARTAN [Concomitant]
     Dosage: DAILY DOSE 1 DF
  2. FINASTERIDE [Concomitant]
  3. ASPIRIN [Suspect]
     Indication: PROPHYLAXIS
     Dosage: 100 MG, QD
     Route: 048
     Dates: start: 20090701, end: 20110304

REACTIONS (3)
  - EROSIVE OESOPHAGITIS [None]
  - DUODENAL ULCER HAEMORRHAGE [None]
  - ANAEMIA [None]
